FAERS Safety Report 9921434 (Version 2)
Quarter: 2014Q1

REPORT INFORMATION
  Report Type: Spontaneous
  Country: DE (occurrence: DE)
  Receive Date: 20140225
  Receipt Date: 20140225
  Transmission Date: 20141002
  Serious: Yes (Hospitalization)
  Sender: FDA-Public Use
  Company Number: DE-SA-2013SA119215

PATIENT
  Age: 66 Year
  Sex: Male
  Weight: 145 kg

DRUGS (16)
  1. LANTUS [Suspect]
     Indication: TYPE 2 DIABETES MELLITUS
     Route: 058
     Dates: start: 20121205, end: 20131028
  2. METFORMIN [Concomitant]
  3. HYDROCHLOROTHIAZIDE [Concomitant]
  4. RAMIPRIL [Concomitant]
  5. GLIMEPIRIDE [Concomitant]
  6. TORASEMIDE [Concomitant]
  7. MOXONIDINE [Concomitant]
  8. TELMISARTAN [Concomitant]
  9. INSULIN [Concomitant]
  10. MICARDIS PLUS [Concomitant]
  11. DELIX [Concomitant]
  12. TOREM [Concomitant]
  13. MOXONIDINE [Concomitant]
  14. ALL OTHER THERAPEUTIC PRODUCTS [Concomitant]
  15. ATORVASTATIN [Concomitant]
  16. GALVUS [Concomitant]
     Indication: DIABETES MELLITUS

REACTIONS (1)
  - Gamma-glutamyltransferase increased [Recovered/Resolved]
